FAERS Safety Report 11700112 (Version 1)
Quarter: 2015Q4

REPORT INFORMATION
  Report Type: Spontaneous
  Country: US (occurrence: None)
  Receive Date: 20151104
  Receipt Date: 20151104
  Transmission Date: 20160304
  Serious: Yes (Disabling, Other)
  Sender: FDA-Public Use
  Company Number: None

PATIENT
  Age: 22 Year
  Sex: Male
  Weight: 68.04 kg

DRUGS (2)
  1. ASACOL [Concomitant]
     Active Substance: MESALAMINE
  2. HUMIRA [Suspect]
     Active Substance: ADALIMUMAB
     Indication: COLITIS ULCERATIVE
     Dosage: SHOT EVERY 2 WEEKS EVERY 14 DAYS
     Route: 030
     Dates: start: 20150424, end: 20150911

REACTIONS (1)
  - Tongue dysplasia [None]

NARRATIVE: CASE EVENT DATE: 20150424
